FAERS Safety Report 9298486 (Version 1)
Quarter: 2013Q1

REPORT INFORMATION
  Report Type: Spontaneous
  Country: US (occurrence: None)
  Receive Date: 20121227
  Receipt Date: 20121227
  Transmission Date: 20140127
  Serious: No
  Sender: FDA-Public Use
  Company Number: PHEH2012US022382

PATIENT
  Age: 22 Year
  Sex: Male
  Weight: 66 kg

DRUGS (6)
  1. AFINITOR [Suspect]
     Indication: TUBEROUS SCLEROSIS
     Route: 048
     Dates: start: 20121106
  2. TIZANIDINE (TIZANIDINE) [Concomitant]
  3. BANZEL (RUFINAMIDE) [Concomitant]
  4. VIMPAT (LACOSAMIDE) [Concomitant]
  5. DEXILANT (DEXLANSOPRAZOLE) [Concomitant]
  6. TRAMADOL (TRAMADOL) [Concomitant]

REACTIONS (1)
  - Convulsion [None]
